FAERS Safety Report 5760910-X (Version None)
Quarter: 2008Q2

REPORT INFORMATION
  Report Type: 
  Country: None (occurrence: None)
  Receive Date: 20080606
  Receipt Date: 20080603
  Transmission Date: 20081010
  Serious: Yes (Hospitalization)
  Sender: FDA-Public Use
  Company Number: FR-BRISTOL-MYERS SQUIBB COMPANY-14216527

PATIENT
  Age: 55 Year
  Sex: Male

DRUGS (8)
  1. REYATAZ [Suspect]
     Indication: HIV INFECTION
     Dates: start: 20070110
  2. TRUVADA [Suspect]
     Indication: HIV INFECTION
     Dosage: IN EVENING.
     Dates: start: 20070110
  3. NORVIR [Suspect]
     Indication: HIV INFECTION
     Dosage: IN EVENING
     Dates: start: 20070110
  4. SEROPRAM [Concomitant]
     Dosage: IN MORNING.
  5. XANAX [Concomitant]
     Dosage: 1 TABLET IN THE MORNING AND 1 EVENING.
  6. DOLIPRANE [Concomitant]
  7. DUSPATALIN [Concomitant]
     Dosage: 1 CAPSULE IN MORNING AND 1 IN EVENING.
  8. KETODERM [Concomitant]
     Dosage: OINTMENT AND SACHETS

REACTIONS (1)
  - MYOCARDIAL INFARCTION [None]
